FAERS Safety Report 7031054-4 (Version None)
Quarter: 2010Q4

REPORT INFORMATION
  Report Type: 
  Country: None (occurrence: None)
  Receive Date: 20101001
  Receipt Date: 20100915
  Transmission Date: 20110411
  Serious: Yes (Life-Threatening)
  Sender: FDA-Public Use
  Company Number: 8197-252-35

PATIENT
  Sex: Female

DRUGS (2)
  1. CAPSAICIN CREAM 0.025% [Suspect]
     Indication: HERPES ZOSTER
     Dosage: 0.025%/DAY TOPICAL(060)
     Route: 061
     Dates: start: 20100910, end: 20100914
  2. CAPSAICIN CREAM 0.025% [Suspect]
     Indication: PAIN
     Dosage: 0.025%/DAY TOPICAL(060)
     Route: 061
     Dates: start: 20100910, end: 20100914

REACTIONS (1)
  - DRUG HYPERSENSITIVITY [None]
